FAERS Safety Report 4940947-0 (Version None)
Quarter: 2006Q1

REPORT INFORMATION
  Report Type: 
  Country: None (occurrence: None)
  Receive Date: 20060307
  Receipt Date: 20060226
  Transmission Date: 20060701
  Serious: No
  Sender: FDA-Public Use
  Company Number: 06H-066-0305906-00

PATIENT
  Age: 19 Year
  Sex: Male

DRUGS (10)
  1. NEOSTIGMINE METHYLSULFATE INJECTION (NEOSTIGMINE) (NEOSTIGMINE) [Suspect]
     Indication: NEUROMUSCULAR BLOCKADE REVERSAL
     Dosage: 0.05 MG/KG, INTRAVENOUS
     Route: 042
  2. 100% OXYGEN (OXYGEN) [Concomitant]
  3. GENERAL ANESTHESIA (ANAESTHETICS, GENERAL) [Concomitant]
  4. KETAMINE (KETAMINE) [Concomitant]
  5. FENTANYL [Concomitant]
  6. PANCURONIUM BROMIDE [Concomitant]
  7. 2% HALOTHANE (HALOTHANE) [Concomitant]
  8. OXYGEN (OXYGEN) [Concomitant]
  9. HALOTHANE [Concomitant]
  10. ATROPINE [Concomitant]

REACTIONS (3)
  - BLOOD PRESSURE DECREASED [None]
  - BRONCHOSPASM [None]
  - HEART RATE INCREASED [None]
